FAERS Safety Report 13727764 (Version 1)
Quarter: 2017Q3

REPORT INFORMATION
  Report Type: Report from Study
  Country: AU (occurrence: AU)
  Receive Date: 20170707
  Receipt Date: 20170707
  Transmission Date: 20171127
  Serious: Yes (Hospitalization, Other)
  Sender: FDA-Public Use
  Company Number: PHHY2017AU079264

PATIENT
  Age: 48 Year
  Sex: Female

DRUGS (1)
  1. SANDOSTATIN LAR DEPOT [Suspect]
     Active Substance: OCTREOTIDE ACETATE
     Indication: CARCINOID SYNDROME
     Dosage: 30 MG, UNK
     Route: 030

REACTIONS (9)
  - Fluid retention [Unknown]
  - Abdominal pain upper [Unknown]
  - Metastases to liver [Unknown]
  - Hepatic function abnormal [Unknown]
  - Coagulopathy [Unknown]
  - Contusion [Recovered/Resolved]
  - Intra-abdominal fluid collection [Unknown]
  - Malignant neoplasm progression [Unknown]
  - Abdominal discomfort [Unknown]

NARRATIVE: CASE EVENT DATE: 20170525
